FAERS Safety Report 5701263-2 (Version None)
Quarter: 2008Q2

REPORT INFORMATION
  Report Type: 
  Country: None (occurrence: None)
  Receive Date: 20080410
  Receipt Date: 20080326
  Transmission Date: 20081010
  Serious: Yes (Hospitalization, Other)
  Sender: FDA-Public Use
  Company Number: PHBS2008NO03695

PATIENT
  Age: 23 Year
  Sex: Female

DRUGS (5)
  1. VOLTAREN [Suspect]
     Indication: POSTOPERATIVE ANALGESIA
     Dosage: 50 MG, TID
     Route: 054
  2. PINEX FORTE [Concomitant]
  3. ACETAMINOPHEN [Concomitant]
  4. AFIPRAN [Concomitant]
     Indication: NAUSEA
  5. SOLU-CORTEF [Concomitant]
     Indication: HYPERSENSITIVITY
     Dosage: 100 MG, TID
     Route: 042

REACTIONS (18)
  - ABDOMINAL PAIN UPPER [None]
  - ABDOMINAL WALL DISORDER [None]
  - ABSCESS INTESTINAL [None]
  - COLITIS ULCERATIVE [None]
  - COLONOSCOPY ABNORMAL [None]
  - CONSTIPATION [None]
  - DIARRHOEA [None]
  - GASTRITIS [None]
  - GASTROINTESTINAL OEDEMA [None]
  - HAEMATOCHEZIA [None]
  - HEADACHE [None]
  - HYPERSENSITIVITY [None]
  - MALAISE [None]
  - PRURITUS [None]
  - PYREXIA [None]
  - RASH [None]
  - SWELLING FACE [None]
  - VOMITING [None]
